FAERS Safety Report 26069432 (Version 1)
Quarter: 2025Q4

REPORT INFORMATION
  Report Type: Spontaneous
  Country: US (occurrence: None)
  Receive Date: 20251119
  Receipt Date: 20251119
  Transmission Date: 20260118
  Serious: Yes (Other)
  Sender: FDA-CTU
  Company Number: None

PATIENT
  Sex: Male

DRUGS (1)
  1. MEKTOVI [Suspect]
     Active Substance: BINIMETINIB
     Indication: Lung neoplasm malignant
     Dosage: 75 MG TWICE A DAY ORAL ?
     Route: 048

REACTIONS (4)
  - Diplopia [None]
  - Dyspnoea [None]
  - Chest pain [None]
  - Pleural effusion [None]
